FAERS Safety Report 10563385 (Version 1)
Quarter: 2014Q4

REPORT INFORMATION
  Report Type: Spontaneous
  Country: US (occurrence: US)
  Receive Date: 20141104
  Receipt Date: 20141104
  Transmission Date: 20150529
  Serious: No
  Sender: FDA-Public Use
  Company Number: US-009507513-1411USA000921

PATIENT
  Age: 69 Year
  Sex: Male

DRUGS (1)
  1. REMERON [Suspect]
     Active Substance: MIRTAZAPINE
     Indication: MAJOR DEPRESSION
     Dosage: UNK
     Route: 048

REACTIONS (3)
  - Gait disturbance [Unknown]
  - Increased appetite [Unknown]
  - Weight increased [Unknown]
